FAERS Safety Report 6922929-2 (Version None)
Quarter: 2010Q3

REPORT INFORMATION
  Report Type: 
  Country: None (occurrence: None)
  Receive Date: 20100813
  Receipt Date: 20100803
  Transmission Date: 20110219
  Serious: Yes (Other)
  Sender: FDA-Public Use
  Company Number: US-MYLANLABS-2010S1014206

PATIENT
  Age: 27 Year
  Sex: Female

DRUGS (4)
  1. SUMATRIPTAN SUCCINATE [Suspect]
     Indication: MIGRAINE
     Route: 048
     Dates: start: 20041118
  2. SUMATRIPTAN SUCCINATE [Suspect]
     Route: 048
     Dates: start: 20100615
  3. LAMOTRIGINE [Concomitant]
  4. YASMIN [Concomitant]

REACTIONS (2)
  - PRURITUS [None]
  - PSORIASIS [None]
